FAERS Safety Report 14853373 (Version 1)
Quarter: 2018Q2

REPORT INFORMATION
  Report Type: Report from Study
  Country: ES (occurrence: ES)
  Receive Date: 20180507
  Receipt Date: 20180507
  Transmission Date: 20180711
  Serious: Yes (Hospitalization)
  Sender: FDA-Public Use
  Company Number: ES-PFIZER INC-2018183569

PATIENT
  Age: 59 Year
  Sex: Female

DRUGS (21)
  1. FENTANYL. [Suspect]
     Active Substance: FENTANYL
     Dosage: 300 UG, RESCUE
     Route: 060
  2. DEXAMETHASONE. [Concomitant]
     Active Substance: DEXAMETHASONE
     Indication: PAIN
     Dosage: 4 MG/ 12H
     Route: 065
  3. FENTANYL. [Suspect]
     Active Substance: FENTANYL
     Indication: PAIN
     Dosage: 100 MCG, AT REQUESTED
     Route: 062
  4. TAPENTADOL [Suspect]
     Active Substance: TAPENTADOL
     Indication: ANALGESIC THERAPY
     Dosage: 25 MG, LUNCH TIME
     Route: 065
  5. TAPENTADOL [Suspect]
     Active Substance: TAPENTADOL
     Dosage: UNKNOWN
     Route: 065
  6. OXYCODONE [Suspect]
     Active Substance: OXYCODONE
     Indication: ANALGESIC THERAPY
     Dosage: 40 MG/12H
     Route: 065
  7. ERLOTINIB [Concomitant]
     Active Substance: ERLOTINIB
     Indication: EGFR GENE MUTATION
     Dosage: 150 MG, DAILY
     Route: 065
  8. PREGABALIN. [Suspect]
     Active Substance: PREGABALIN
     Dosage: 25 MG, DINNER
     Route: 065
  9. FENTANYL. [Suspect]
     Active Substance: FENTANYL
     Indication: BREAKTHROUGH PAIN
     Dosage: 2 SUBLINGUAL FENTANYL RESCUE/ DAY
     Route: 060
  10. LIDOCAINE. [Suspect]
     Active Substance: LIDOCAINE
     Indication: ANALGESIC THERAPY
     Dosage: 1 DF, Q12H
     Route: 061
  11. LIDOCAINE. [Suspect]
     Active Substance: LIDOCAINE
     Dosage: 1 DF, Q6H
     Route: 061
  12. FENTANYL. [Suspect]
     Active Substance: FENTANYL
     Dosage: 150 MCG, DAILY
     Route: 062
  13. PREGABALIN. [Suspect]
     Active Substance: PREGABALIN
     Indication: ANALGESIC THERAPY
     Dosage: 75 MG/8H
     Route: 065
  14. FENTANYL. [Suspect]
     Active Substance: FENTANYL
     Dosage: 100 MCG, AT REQUESTED
     Route: 060
  15. FENTANYL. [Suspect]
     Active Substance: FENTANYL
     Dosage: 400 UG, UNK
     Route: 060
  16. ZOMETA [Concomitant]
     Active Substance: ZOLEDRONIC ACID
     Indication: EGFR GENE MUTATION
     Dosage: 4 MG, MONTHLY
     Route: 065
  17. FENTANYL. [Suspect]
     Active Substance: FENTANYL
     Dosage: 50 MCG/72H
     Route: 062
  18. FENTANYL. [Suspect]
     Active Substance: FENTANYL
     Dosage: 6 SUBLINGUAL FENTANYL RESCUES AT NIGHT
     Route: 060
  19. FENTANYL. [Suspect]
     Active Substance: FENTANYL
     Dosage: 200 UG, RESCUE
     Route: 060
  20. NALOXONE W/OXYCODONE [Suspect]
     Active Substance: NALOXONE HYDROCHLORIDE\OXYCODONE HYDROCHLORIDE
     Indication: ANALGESIC THERAPY
     Dosage: 40/20 (1/12H)
     Route: 065
  21. AMITRIPTYLLIN (AMITRIPTYLINE HYDROCHLORIDE) [Suspect]
     Active Substance: AMITRIPTYLINE HYDROCHLORIDE
     Indication: ANALGESIC THERAPY
     Dosage: 10 MG, DINNER
     Route: 065

REACTIONS (7)
  - Rash [Unknown]
  - Malaise [Recovered/Resolved]
  - Nausea [Recovered/Resolved]
  - Inappropriate schedule of drug administration [Unknown]
  - Night sweats [Recovered/Resolved]
  - Decreased appetite [Recovered/Resolved]
  - Insomnia [Recovered/Resolved]
